FAERS Safety Report 25266915 (Version 1)
Quarter: 2025Q2

REPORT INFORMATION
  Report Type: Spontaneous
  Country: IL (occurrence: IL)
  Receive Date: 20250505
  Receipt Date: 20250505
  Transmission Date: 20250716
  Serious: Yes (Other)
  Sender: ADAPTIS PHARMA INDIA
  Company Number: IL-Adaptis Pharma Private Limited-2176148

PATIENT
  Age: 72 Year
  Sex: Female

DRUGS (3)
  1. LEVETIRACETAM [Suspect]
     Active Substance: LEVETIRACETAM
     Indication: Generalised tonic-clonic seizure
  2. LACOSAMIDE [Concomitant]
     Active Substance: LACOSAMIDE
  3. CLOBAZAM [Concomitant]
     Active Substance: CLOBAZAM

REACTIONS (2)
  - Seizure [Recovering/Resolving]
  - Cognitive disorder [Recovering/Resolving]
